FAERS Safety Report 16697281 (Version 1)
Quarter: 2019Q3

REPORT INFORMATION
  Report Type: Spontaneous
  Country: CA (occurrence: CA)
  Receive Date: 20190813
  Receipt Date: 20190813
  Transmission Date: 20191004
  Serious: Yes (Life-Threatening)
  Sender: FDA-Public Use
  Company Number: CA-PFIZER INC-2019344500

PATIENT
  Age: 57 Year
  Sex: Male
  Weight: 70 kg

DRUGS (3)
  1. DALACIN [Suspect]
     Active Substance: CLINDAMYCIN
     Indication: CELLULITIS
     Dosage: 150 MG/ML, SINGLE
     Route: 042
  2. CITALOPRAM [Suspect]
     Active Substance: CITALOPRAM HYDROBROMIDE
     Dosage: UNK
  3. SYNTHROID [Concomitant]
     Active Substance: LEVOTHYROXINE SODIUM
     Dosage: UNK

REACTIONS (4)
  - Dyspnoea [Recovered/Resolved]
  - Erythema [Recovered/Resolved]
  - Cough [Recovered/Resolved]
  - Throat tightness [Recovered/Resolved]
